FAERS Safety Report 8090328-9 (Version None)
Quarter: 2012Q1

REPORT INFORMATION
  Report Type: 
  Country: None (occurrence: None)
  Receive Date: 20120129
  Receipt Date: 20111121
  Transmission Date: 20120608
  Serious: No
  Sender: FDA-Public Use
  Company Number: US-ABBOTT-11P-163-0875855-00

PATIENT
  Sex: Male
  Weight: 95.34 kg

DRUGS (7)
  1. HUMIRA [Suspect]
     Indication: CROHN'S DISEASE
     Dates: start: 20111001, end: 20111001
  2. PENTASA [Concomitant]
     Indication: CROHN'S DISEASE
  3. HUMIRA [Suspect]
     Dates: start: 20111101
  4. VITAMIN TAB [Concomitant]
     Indication: VITAMIN SUPPLEMENTATION
  5. LISINOPRIL [Concomitant]
     Indication: CARDIAC DISORDER
  6. VITAMIN B-12 [Concomitant]
     Indication: VITAMIN SUPPLEMENTATION
  7. METOPROLOL TARTRATE [Concomitant]
     Indication: HYPERTENSION

REACTIONS (1)
  - RASH [None]
